FAERS Safety Report 12889808 (Version 2)
Quarter: 2017Q1

REPORT INFORMATION
  Report Type: Spontaneous
  Country: US (occurrence: US)
  Receive Date: 20161027
  Receipt Date: 20170331
  Transmission Date: 20170428
  Serious: Yes (Other)
  Sender: FDA-Public Use
  Company Number: US-PFIZER INC-2016492938

PATIENT
  Age: 54 Year
  Sex: Female

DRUGS (1)
  1. XELJANZ XR [Suspect]
     Active Substance: TOFACITINIB CITRATE
     Indication: RHEUMATOID ARTHRITIS
     Dosage: 11 MG, DAILY

REACTIONS (6)
  - Renal cyst [Unknown]
  - Back pain [Unknown]
  - Influenza [Unknown]
  - Rheumatoid arthritis [Unknown]
  - Condition aggravated [Unknown]
  - Joint dislocation [Unknown]

NARRATIVE: CASE EVENT DATE: 20160713
